FAERS Safety Report 7889397-8 (Version None)
Quarter: 2011Q4

REPORT INFORMATION
  Report Type: 
  Country: None (occurrence: None)
  Receive Date: 20111103
  Receipt Date: 20111019
  Transmission Date: 20120403
  Serious: Yes (Other)
  Sender: FDA-Public Use
  Company Number: US-BAYER-201039796NA

PATIENT
  Sex: Female

DRUGS (12)
  1. YASMIN [Suspect]
     Indication: PRODUCT USED FOR UNKNOWN INDICATION
     Dates: start: 20050601
  2. IMODIUM [Concomitant]
     Dosage: UNK UNK, PRN
  3. CLARITIN [Concomitant]
     Dosage: UNK UNK, PRN
  4. MILK OF MAGNESIA TAB [Concomitant]
     Dosage: UNK UNK, PRN
  5. TYLENOL-500 [Concomitant]
     Dosage: UNK UNK, PRN
  6. HYOSCYAMINE [Concomitant]
     Indication: IRRITABLE BOWEL SYNDROME
     Dosage: UNK UNK, PRN
  7. ZOFRAN [Concomitant]
     Dosage: UNK UNK, PRN
  8. ALIMENTARY TRACT AND METABOLISM [Concomitant]
     Dosage: UNK UNK, PRN
  9. CALCIUM CARBONATE [Concomitant]
  10. IBUPROFEN [Concomitant]
     Dosage: UNK UNK, PRN
  11. VITAMINS NOS [Concomitant]
  12. YAZ [Suspect]
     Indication: PRODUCT USED FOR UNKNOWN INDICATION
     Dates: start: 20050601

REACTIONS (4)
  - ABDOMINAL PAIN [None]
  - ABDOMINAL DISTENSION [None]
  - NAUSEA [None]
  - CHOLELITHIASIS [None]
